FAERS Safety Report 9272727 (Version 1)
Quarter: 2013Q2

REPORT INFORMATION
  Report Type: Spontaneous
  Country: IN (occurrence: IN)
  Receive Date: 20130506
  Receipt Date: 20130506
  Transmission Date: 20140414
  Serious: Yes (Death)
  Sender: FDA-Public Use
  Company Number: IN-JNJFOC-20130500221

PATIENT
  Sex: 0

DRUGS (3)
  1. DOXORUBICIN [Suspect]
     Indication: NEPHROBLASTOMA
     Dosage: 6-10 WEEKS
     Route: 042
  2. ACTINOMYCIN D [Suspect]
     Indication: NEPHROBLASTOMA
     Dosage: 6-10 WEEKS
     Route: 065
  3. VINCRISTINE [Suspect]
     Indication: NEPHROBLASTOMA
     Dosage: 6-10 WEEKS
     Route: 065

REACTIONS (2)
  - Renal failure [Fatal]
  - Off label use [Unknown]
